FAERS Safety Report 7024480-0 (Version None)
Quarter: 2010Q4

REPORT INFORMATION
  Report Type: 
  Country: None (occurrence: None)
  Receive Date: 20101001
  Receipt Date: 20100929
  Transmission Date: 20110411
  Serious: Yes (Death, Hospitalization)
  Sender: FDA-Public Use
  Company Number: A0835811A

PATIENT
  Age: 72 Year
  Sex: Female

DRUGS (1)
  1. AVANDIA [Suspect]
     Dosage: 6MG PER DAY
     Route: 048
     Dates: start: 20000101, end: 20070601

REACTIONS (5)
  - ARRHYTHMIA [None]
  - CARDIAC FAILURE CONGESTIVE [None]
  - CEREBRAL HAEMORRHAGE [None]
  - CEREBROVASCULAR ACCIDENT [None]
  - RENAL FAILURE [None]
